FAERS Safety Report 9208641 (Version 1)
Quarter: 2013Q2

REPORT INFORMATION
  Report Type: Spontaneous
  Country: US (occurrence: US)
  Receive Date: 20130404
  Receipt Date: 20130404
  Transmission Date: 20140414
  Serious: Yes (Other)
  Sender: FDA-Public Use
  Company Number: US-PFIZER INC-2013102022

PATIENT
  Age: 26 Year
  Sex: Female

DRUGS (3)
  1. CHLOROMYCETIN [Suspect]
     Dosage: 1 G/DAY
     Route: 042
  2. CHLOROMYCETIN [Suspect]
     Dosage: 10 GM (IN 7TH HOUR)
     Route: 042
  3. CHLOROMYCETIN [Suspect]
     Dosage: 10 GM (IN 12TH HOUR)
     Route: 042

REACTIONS (6)
  - Accidental overdose [Recovered/Resolved]
  - Drug label confusion [Recovered/Resolved]
  - Shock [Recovered/Resolved]
  - Coma [Recovered/Resolved]
  - Blood pressure decreased [Recovered/Resolved]
  - Cyanosis [Recovered/Resolved]
